FAERS Safety Report 25225455 (Version 1)
Quarter: 2025Q2

REPORT INFORMATION
  Report Type: Other
  Country: JP (occurrence: JP)
  Receive Date: 20250422
  Receipt Date: 20250422
  Transmission Date: 20250716
  Serious: Yes (Life-Threatening, Hospitalization, Other)
  Sender: OWLPHARMA CONSULTING
  Company Number: JP-Owlpharma Consulting, Lda.-2175346

PATIENT
  Age: 11 Year
  Sex: Male
  Weight: 22.9 kg

DRUGS (5)
  1. DEXMEDETOMIDINE HYDROCHLORIDE [Suspect]
     Active Substance: DEXMEDETOMIDINE HYDROCHLORIDE
     Indication: Sedation
  2. FENTANYL [Suspect]
     Active Substance: FENTANYL
  3. MORPHINE [Suspect]
     Active Substance: MORPHINE
  4. KETAMINE [Suspect]
     Active Substance: KETAMINE
  5. MIDAZOLAM [Suspect]
     Active Substance: MIDAZOLAM

REACTIONS (4)
  - Drug withdrawal syndrome [Recovered/Resolved]
  - Tachypnoea [Recovered/Resolved]
  - Negative pressure pulmonary oedema [Recovered/Resolved]
  - Drug tolerance [Recovering/Resolving]
